FAERS Safety Report 23047864 (Version 3)
Quarter: 2024Q2

REPORT INFORMATION
  Report Type: Spontaneous
  Country: US (occurrence: US)
  Receive Date: 20231010
  Receipt Date: 20240522
  Transmission Date: 20240716
  Serious: Yes (Disabling, Other)
  Sender: FDA-Public Use
  Company Number: US-OPELLA-2023OHG010322

PATIENT
  Sex: Female

DRUGS (1)
  1. TALC [Suspect]
     Active Substance: TALC
     Indication: Product used for unknown indication
     Route: 065

REACTIONS (8)
  - Mesothelioma malignant [Unknown]
  - Disability [Unknown]
  - Exposure to chemical pollution [Unknown]
  - Pain [Unknown]
  - Anxiety [Unknown]
  - Quality of life decreased [Unknown]
  - Injury [Unknown]
  - Emotional distress [Unknown]
